FAERS Safety Report 23600520 (Version 3)
Quarter: 2024Q1

REPORT INFORMATION
  Report Type: Spontaneous
  Country: US (occurrence: US)
  Receive Date: 20240306
  Receipt Date: 20240325
  Transmission Date: 20240410
  Serious: No
  Sender: FDA-Public Use
  Company Number: US-PFIZER INC-202400040778

PATIENT
  Age: 15 Year
  Sex: Male

DRUGS (1)
  1. GENOTROPIN [Suspect]
     Active Substance: SOMATROPIN
     Dosage: ALTERNATE 2.6MG + 2.8MG EVERY OTHER DAY, 6 DAYS PER WEEK

REACTIONS (2)
  - Device breakage [Unknown]
  - Wrong technique in device usage process [Unknown]
